FAERS Safety Report 12912521 (Version 1)
Quarter: 2016Q4

REPORT INFORMATION
  Report Type: Spontaneous
  Country: US (occurrence: US)
  Receive Date: 20161104
  Receipt Date: 20161104
  Transmission Date: 20170207
  Serious: Yes (Other)
  Sender: FDA-Public Use
  Company Number: US-SA-2016SA200441

PATIENT
  Age: 62 Year
  Sex: Male

DRUGS (1)
  1. ALLEGRA [Suspect]
     Active Substance: FEXOFENADINE HYDROCHLORIDE
     Indication: SEASONAL ALLERGY
     Route: 048

REACTIONS (5)
  - Upper-airway cough syndrome [Unknown]
  - Cough [Unknown]
  - Drug ineffective [Unknown]
  - Pulmonary oedema [Unknown]
  - Hypersensitivity [Unknown]
